FAERS Safety Report 7030445-5 (Version None)
Quarter: 2010Q4

REPORT INFORMATION
  Report Type: 
  Country: None (occurrence: None)
  Receive Date: 20101006
  Receipt Date: 20100927
  Transmission Date: 20110411
  Serious: Yes (Life-Threatening)
  Sender: FDA-Public Use
  Company Number: FR-BAXTER-2010BH024758

PATIENT
  Age: 63 Year
  Sex: Male

DRUGS (6)
  1. CYCLOPHOSPHAMIDE [Suspect]
     Indication: CHRONIC LYMPHOCYTIC LEUKAEMIA
     Route: 042
     Dates: start: 20100806, end: 20100808
  2. MABTHERA [Suspect]
     Indication: CHRONIC LYMPHOCYTIC LEUKAEMIA
     Route: 042
     Dates: start: 20100806, end: 20100806
  3. MABTHERA [Suspect]
     Route: 042
     Dates: start: 20100805, end: 20100805
  4. FLUDARABINE PHOSPHATE [Suspect]
     Indication: CHRONIC LYMPHOCYTIC LEUKAEMIA
     Route: 042
     Dates: start: 20100806, end: 20100807
  5. ACETAMINOPHEN [Suspect]
     Indication: PREMEDICATION
     Route: 048
     Dates: start: 20100805, end: 20100806
  6. METHYLPREDNISOLONE [Suspect]
     Indication: PREMEDICATION
     Route: 042
     Dates: start: 20100805, end: 20100807

REACTIONS (1)
  - HAEMOLYSIS [None]
